FAERS Safety Report 8791430 (Version 1)
Quarter: 2012Q4

REPORT INFORMATION
  Report Type: Spontaneous
  Country: US (occurrence: None)
  Receive Date: 20120914
  Receipt Date: 20120914
  Transmission Date: 20130627
  Serious: Yes (Other)
  Sender: FDA-Public Use
  Company Number: None

PATIENT
  Age: 68 Year
  Sex: Male
  Weight: 83.92 kg

DRUGS (2)
  1. PROAIR [Suspect]
     Indication: ASTHMA
     Dosage: 1 puff 2 puffs 2 time a d intramedullar
     Route: 028
     Dates: start: 20120315, end: 20120913
  2. PROAIR [Suspect]
     Indication: ASTHMA
     Dates: start: 20120314, end: 20120913

REACTIONS (2)
  - Chest pain [None]
  - Drug ineffective [None]
